FAERS Safety Report 19790135 (Version 1)
Quarter: 2021Q3

REPORT INFORMATION
  Report Type: Spontaneous
  Country: DE (occurrence: DE)
  Receive Date: 20210905
  Receipt Date: 20210905
  Transmission Date: 20211014
  Serious: Yes (Other)
  Sender: FDA-Public Use
  Company Number: DE-ROCHE-2904607

PATIENT
  Age: 38 Year
  Sex: Female

DRUGS (2)
  1. OCREVUS [Suspect]
     Active Substance: OCRELIZUMAB
     Dosage: SECOND INITIAL DOSE
     Route: 065
     Dates: start: 202101
  2. OCREVUS [Suspect]
     Active Substance: OCRELIZUMAB
     Indication: RELAPSING MULTIPLE SCLEROSIS
     Dosage: FIRST INITIAL DOSE
     Route: 065
     Dates: start: 202012

REACTIONS (2)
  - Magnetic resonance imaging abnormal [Unknown]
  - Multiple sclerosis relapse [Unknown]
